FAERS Safety Report 11525476 (Version 1)
Quarter: 2015Q3

REPORT INFORMATION
  Report Type: Spontaneous
  Country: JP (occurrence: JP)
  Receive Date: 20150918
  Receipt Date: 20150918
  Transmission Date: 20151125
  Serious: Yes (Hospitalization, Other)
  Sender: FDA-Public Use
  Company Number: JP-ASTRAZENECA-2015SE78185

PATIENT

DRUGS (4)
  1. AMARYL [Concomitant]
     Active Substance: GLIMEPIRIDE
     Indication: DIABETES MELLITUS
     Route: 048
     Dates: start: 201409, end: 201410
  2. ONGLYZA [Suspect]
     Active Substance: SAXAGLIPTIN HYDROCHLORIDE
     Indication: DIABETES MELLITUS
     Route: 048
  3. SULFONYLUREA, DERIVATIVES AND PREPARATIONS [Concomitant]
     Route: 048
     Dates: start: 201409, end: 201410
  4. ONGLYZA [Suspect]
     Active Substance: SAXAGLIPTIN HYDROCHLORIDE
     Indication: DIABETES MELLITUS
     Route: 048
     Dates: start: 201409

REACTIONS (2)
  - Blood glucose decreased [Not Recovered/Not Resolved]
  - Hypoglycaemic encephalopathy [Unknown]

NARRATIVE: CASE EVENT DATE: 201508
